FAERS Safety Report 8914297 (Version 1)
Quarter: 2012Q4

REPORT INFORMATION
  Report Type: 
  Country: IN (occurrence: IN)
  Receive Date: 20121118
  Receipt Date: 20121118
  Transmission Date: 20130627
  Serious: Yes (Other)
  Sender: FDA-Public Use
  Company Number: IN-MYLANLABS-2012S1023186

PATIENT
  Age: 50 Year
  Sex: Male

DRUGS (4)
  1. TENOFOVIR DISOPROXIL FUMARATE [Suspect]
     Indication: HIV INFECTION
     Route: 065
  2. STAVUDINE [Suspect]
     Indication: HIV INFECTION
     Route: 065
  3. LAMIVUDINE [Concomitant]
     Indication: HIV INFECTION
     Route: 065
  4. NEVIRAPINE [Concomitant]
     Indication: HIV INFECTION
     Route: 065

REACTIONS (7)
  - Photosensitivity reaction [Recovered/Resolved]
  - Neuropathy peripheral [Unknown]
  - Pyrexia [None]
  - Tachycardia [None]
  - Anaemia macrocytic [None]
  - Thrombocytopenia [None]
  - Eosinophilia [None]
